FAERS Safety Report 4898602-1 (Version None)
Quarter: 2006Q1

REPORT INFORMATION
  Report Type: 
  Country: None (occurrence: None)
  Receive Date: 20060130
  Receipt Date: 20060113
  Transmission Date: 20060701
  Serious: Yes (Life-Threatening, Hospitalization)
  Sender: FDA-Public Use
  Company Number: 2006VX000020

PATIENT
  Age: 63 Year
  Sex: Female

DRUGS (4)
  1. MESTINON [Suspect]
     Indication: OCULAR HYPERTENSION
     Dosage: 60 MG; BID; PO
     Route: 048
     Dates: end: 20050801
  2. OMEPRAZOLE [Concomitant]
  3. RISEDRONIC ACID [Concomitant]
  4. DICLOFENAC [Concomitant]

REACTIONS (1)
  - ATRIOVENTRICULAR BLOCK [None]
